FAERS Safety Report 18810943 (Version 1)
Quarter: 2021Q1

REPORT INFORMATION
  Report Type: Report from Study
  Country: US (occurrence: US)
  Receive Date: 20210129
  Receipt Date: 20210129
  Transmission Date: 20210419
  Serious: Yes (Death)
  Sender: FDA-Public Use
  Company Number: US-ASTRAZENECA-2021A014846

PATIENT
  Sex: Female
  Weight: 59 kg

DRUGS (1)
  1. LYNPARZA [Suspect]
     Active Substance: OLAPARIB
     Indication: OVARIAN CANCER
     Dosage: TAKE 2 TABLETS IN AM, TAKE 1 TABLET IN PM, WITH WATER, TOTAL 450 MG PER DAY
     Route: 048

REACTIONS (1)
  - Death [Fatal]
